FAERS Safety Report 21521733 (Version 1)
Quarter: 2022Q4

REPORT INFORMATION
  Report Type: Spontaneous
  Country: US (occurrence: US)
  Receive Date: 20221028
  Receipt Date: 20221028
  Transmission Date: 20230113
  Serious: No
  Sender: FDA-Public Use
  Company Number: US-BIOMARINAP-US-2022-146421

PATIENT

DRUGS (1)
  1. VOXZOGO [Suspect]
     Active Substance: VOSORITIDE
     Indication: Product used for unknown indication
     Dosage: UNK
     Route: 058
     Dates: start: 20221024

REACTIONS (4)
  - Abdominal pain upper [Unknown]
  - Fatigue [Unknown]
  - Somnolence [Unknown]
  - Dizziness [Unknown]

NARRATIVE: CASE EVENT DATE: 20221025
